FAERS Safety Report 10019196 (Version 5)
Quarter: 2014Q2

REPORT INFORMATION
  Report Type: Spontaneous
  Country: CH (occurrence: CH)
  Receive Date: 20140318
  Receipt Date: 20140421
  Transmission Date: 20141212
  Serious: Yes (Disabling, Other)
  Sender: FDA-Public Use
  Company Number: CH-ELI_LILLY_AND_COMPANY-CH201403002082

PATIENT
  Age: 44 Year
  Sex: Female
  Weight: 64.99 kg

DRUGS (12)
  1. CYMBALTA [Suspect]
     Indication: DEPRESSION
     Dosage: 90 MG, QD
     Route: 048
     Dates: start: 200905, end: 20131217
  2. CYMBALTA [Suspect]
     Dosage: 120 MG, QD
     Route: 048
  3. LORAZEPAM [Concomitant]
     Indication: PRODUCT USED FOR UNKNOWN INDICATION
     Dosage: 1 MG, UNK
     Route: 048
  4. WELLBUTRIN [Concomitant]
     Indication: DEPRESSION
     Dosage: 150 MG, QD
     Route: 048
  5. TRUXAL [Concomitant]
     Indication: SLEEP DISORDER
     Dosage: 15 MG, SINGLE
     Route: 048
     Dates: start: 2009, end: 2009
  6. SEROQUEL XR [Concomitant]
     Indication: PRODUCT USED FOR UNKNOWN INDICATION
     Dosage: 50 MG, SINGLE
     Route: 048
     Dates: start: 2012, end: 2012
  7. PROMAZIN                           /00033001/ [Concomitant]
     Indication: SLEEP DISORDER
     Dosage: 25 MG, QD
     Route: 048
     Dates: start: 2012, end: 2012
  8. LAMICTAL [Concomitant]
     Dosage: UNK
     Dates: start: 2010, end: 2010
  9. CIPRALEX [Concomitant]
     Dosage: UNK
     Dates: start: 2006, end: 2009
  10. EFEXOR [Concomitant]
     Indication: DEPRESSION
     Dosage: UNK
     Dates: start: 2009, end: 2009
  11. REMERON [Concomitant]
     Dosage: UNK
     Dates: start: 2009, end: 2009
  12. LITHIUM [Concomitant]
     Dosage: UNK
     Dates: start: 2010, end: 2010

REACTIONS (7)
  - Dyskinesia [Not Recovered/Not Resolved]
  - Torticollis [Unknown]
  - Chest discomfort [Unknown]
  - Sensory disturbance [Unknown]
  - Tremor [Unknown]
  - Dyskinesia [Unknown]
  - Intentional product misuse [Unknown]
